FAERS Safety Report 6639608-1 (Version None)
Quarter: 2010Q1

REPORT INFORMATION
  Report Type: 
  Country: None (occurrence: None)
  Receive Date: 20100318
  Receipt Date: 20100316
  Transmission Date: 20100710
  Serious: Yes (Other)
  Sender: FDA-Public Use
  Company Number: CA-ROXANE LABORATORIES, INC.-2010-RO-00270RO

PATIENT
  Age: 25 Year
  Sex: Female

DRUGS (3)
  1. FLUCONAZOLE [Suspect]
     Indication: VULVOVAGINAL CANDIDIASIS
  2. ORAL CONTRACEPTIVES [Suspect]
     Route: 048
  3. CLOBETASOL PROPIONATE [Suspect]
     Indication: LICHEN PLANUS
     Route: 061

REACTIONS (2)
  - DRUG ERUPTION [None]
  - SKIN STRIAE [None]
